FAERS Safety Report 8197614-2 (Version None)
Quarter: 2012Q1

REPORT INFORMATION
  Report Type: 
  Country: None (occurrence: None)
  Receive Date: 20120309
  Receipt Date: 20120301
  Transmission Date: 20120608
  Serious: Yes (Other)
  Sender: FDA-Public Use
  Company Number: US-ALEXION-A201200347

PATIENT
  Sex: Female

DRUGS (11)
  1. SOLIRIS [Suspect]
     Indication: PAROXYSMAL NOCTURNAL HAEMOGLOBINURIA
     Dosage: 900 MG, Q2W
     Route: 042
  2. DILAUDID [Concomitant]
     Dosage: UNK
  3. PAXIL [Concomitant]
     Dosage: UNK
  4. ADVAIR DISKUS 100/50 [Concomitant]
     Dosage: UNK
  5. FOLIC ACID [Concomitant]
     Dosage: UNK
  6. RESTORIL [Concomitant]
     Dosage: UNK
  7. BENADRYL [Concomitant]
     Dosage: UNK
  8. COLACE [Concomitant]
     Dosage: UNK
  9. SPIRIVA [Concomitant]
     Dosage: UNK
  10. LOVENOX [Concomitant]
     Dosage: 100 MG, QD
     Route: 058
  11. ALBUTEROL [Concomitant]
     Dosage: UNK

REACTIONS (4)
  - DEVICE RELATED INFECTION [None]
  - BACTERAEMIA [None]
  - SERUM FERRITIN INCREASED [None]
  - PYREXIA [None]
